FAERS Safety Report 9248269 (Version 2)
Quarter: 2013Q2

REPORT INFORMATION
  Report Type: Spontaneous
  Country: US (occurrence: US)
  Receive Date: 20130423
  Receipt Date: 20130513
  Transmission Date: 20140414
  Serious: Yes (Other)
  Sender: FDA-Public Use
  Company Number: US-JNJFOC-20130407423

PATIENT
  Sex: 0

DRUGS (10)
  1. DOXORUBICIN HYDROCHLORIDE [Suspect]
     Indication: MANTLE CELL LYMPHOMA
     Route: 042
  2. RITUXIMAB [Suspect]
     Indication: MANTLE CELL LYMPHOMA
     Route: 065
  3. CYCLOPHOSPHAMIDE [Suspect]
     Indication: MANTLE CELL LYMPHOMA
     Route: 065
  4. VINCRISTINE [Suspect]
     Indication: MANTLE CELL LYMPHOMA
     Route: 065
  5. PREDNISONE [Suspect]
     Indication: MANTLE CELL LYMPHOMA
     Route: 065
  6. ARA-C [Suspect]
     Indication: MANTLE CELL LYMPHOMA
     Route: 065
  7. DEXAMETHASONE [Suspect]
     Indication: MANTLE CELL LYMPHOMA
     Route: 065
  8. CYTARABINE [Suspect]
     Indication: MANTLE CELL LYMPHOMA
     Route: 065
  9. CISPLATIN [Suspect]
     Indication: MANTLE CELL LYMPHOMA
     Route: 065
  10. RADIOTHERAPY [Suspect]
     Indication: MANTLE CELL LYMPHOMA
     Route: 065

REACTIONS (5)
  - Mantle cell lymphoma recurrent [Unknown]
  - Bone marrow failure [Unknown]
  - Toxicity to various agents [Unknown]
  - Treatment failure [Unknown]
  - Adverse event [Unknown]
